FAERS Safety Report 5833904-3 (Version None)
Quarter: 2008Q3

REPORT INFORMATION
  Report Type: 
  Country: None (occurrence: None)
  Receive Date: 20080805
  Receipt Date: 20080725
  Transmission Date: 20090109
  Serious: Yes (Hospitalization, Disabling)
  Sender: FDA-Public Use
  Company Number: B0414323A

PATIENT
  Age: 55 Year
  Sex: Male
  Weight: 83 kg

DRUGS (3)
  1. DEROXAT [Suspect]
     Indication: ANXIETY
     Dosage: 1UNIT PER DAY
     Route: 048
     Dates: start: 20060113, end: 20060501
  2. LEVOTHYROX [Concomitant]
     Indication: HYPOTHYROIDISM
     Dosage: 75MCG PER DAY
     Route: 048
     Dates: start: 20050101
  3. VICTAN [Concomitant]
     Indication: ANXIETY
     Route: 065
     Dates: start: 19900101

REACTIONS (12)
  - ANXIETY [None]
  - DYSPHAGIA [None]
  - HYPOAESTHESIA [None]
  - OESOPHAGITIS [None]
  - PARAESTHESIA [None]
  - PITYRIASIS ROSEA [None]
  - SENSORY DISTURBANCE [None]
  - SKIN PLAQUE [None]
  - SOMATOFORM DISORDER [None]
  - THERMOANAESTHESIA [None]
  - URTICARIA [None]
  - WEIGHT DECREASED [None]
